FAERS Safety Report 6903361-4 (Version None)
Quarter: 2010Q3

REPORT INFORMATION
  Report Type: 
  Country: None (occurrence: None)
  Receive Date: 20100803
  Receipt Date: 20080924
  Transmission Date: 20110219
  Serious: Yes (Other)
  Sender: FDA-Public Use
  Company Number: US-PFIZER INC-2008066771

PATIENT
  Sex: Female
  Weight: 92.5 kg

DRUGS (5)
  1. LYRICA [Suspect]
     Indication: FIBROMYALGIA
     Route: 048
     Dates: start: 20080609
  2. ASACOL [Concomitant]
  3. FELODIPINE [Concomitant]
  4. PEPCID [Concomitant]
  5. LOVASTATIN [Concomitant]

REACTIONS (8)
  - BALANCE DISORDER [None]
  - FATIGUE [None]
  - FIBROMYALGIA [None]
  - INCORRECT DOSE ADMINISTERED [None]
  - JOINT SWELLING [None]
  - OEDEMA PERIPHERAL [None]
  - RASH [None]
  - WEIGHT INCREASED [None]
